FAERS Safety Report 8653921 (Version 2)
Quarter: 2012Q4

REPORT INFORMATION
  Report Type: 
  Country: DK (occurrence: DK)
  Receive Date: 20120709
  Receipt Date: 20121010
  Transmission Date: 20130627
  Serious: Yes (Hospitalization)
  Sender: FDA-Public Use
  Company Number: PHHY2012DK057301

PATIENT
  Age: 90 Year
  Sex: Female

DRUGS (12)
  1. CORODIL [Suspect]
     Indication: HYPERTENSION
     Dosage: 5 mg
     Route: 048
     Dates: end: 20120625
  2. CORODIL [Suspect]
     Dosage: STYRKE: 5 mg
     Route: 048
     Dates: end: 20120625
  3. DIGOXIN [Suspect]
     Indication: ATRIAL FLUTTER
     Dosage: 125 ug
     Route: 048
  4. COZAAR [Suspect]
     Indication: HYPERTENSION
     Route: 048
     Dates: end: 20120625
  5. COZAAR [Suspect]
     Route: 048
     Dates: end: 20120625
  6. ISOPTIN [Suspect]
     Indication: ANGINA PECTORIS
     Dosage: 120 mg
     Route: 048
     Dates: end: 20120625
  7. ISOPTIN [Suspect]
     Dosage: STYRKE: 120 mg
     Route: 048
     Dates: end: 20120625
  8. FURIX [Concomitant]
  9. HJERTEMAGNYL [Concomitant]
  10. SIMVASTATIN [Concomitant]
  11. SERETIDE DISKUS [Concomitant]
  12. KALEORID [Concomitant]

REACTIONS (4)
  - Atrioventricular block complete [Recovered/Resolved]
  - Hypotension [Recovered/Resolved]
  - Dyspnoea [Recovered/Resolved]
  - Palpitations [Recovered/Resolved]
